FAERS Safety Report 8873858 (Version 2)
Quarter: 2013Q1

REPORT INFORMATION
  Report Type: Spontaneous
  Country: JP (occurrence: JP)
  Receive Date: 20121030
  Receipt Date: 20130102
  Transmission Date: 20140127
  Serious: Yes (Other)
  Sender: FDA-Public Use
  Company Number: JP-WATSON-2012-18386

PATIENT
  Age: 72 Year
  Sex: Male

DRUGS (2)
  1. PREDNISOLONE (UNKNOWN) [Suspect]
     Indication: INTERSTITIAL LUNG DISEASE
     Dosage: 15 -20 MG, DAILY
     Route: 048
  2. CYCLOSPORINE (WATSON LABORATORIES) [Suspect]
     Indication: PUSTULAR PSORIASIS
     Dosage: UNK
     Route: 065

REACTIONS (2)
  - Pustular psoriasis [Recovered/Resolved]
  - Renal impairment [Recovered/Resolved]
